FAERS Safety Report 6400453-3 (Version None)
Quarter: 2009Q4

REPORT INFORMATION
  Report Type: 
  Country: None (occurrence: None)
  Receive Date: 20091014
  Receipt Date: 20090930
  Transmission Date: 20100525
  Serious: Yes (Other)
  Sender: FDA-Public Use
  Company Number: US-ELI_LILLY_AND_COMPANY-US200910000859

PATIENT
  Age: 73 Year
  Sex: Female

DRUGS (7)
  1. EVISTA [Suspect]
     Dosage: 60 MG, UNKNOWN
     Route: 065
     Dates: end: 20090914
  2. CALTRATE [Concomitant]
     Dosage: UNK, UNKNOWN
     Route: 065
  3. PROPRANOLOL [Concomitant]
     Dosage: 20 MG, UNKNOWN
     Route: 065
     Dates: start: 20090701
  4. OMEPRAZOLE [Concomitant]
     Dosage: 20 MG, UNKNOWN
     Route: 065
  5. SINGULAIR [Concomitant]
     Dosage: UNK, UNKNOWN
     Route: 065
  6. XALATAN [Concomitant]
     Dosage: UNK, UNKNOWN
     Route: 065
  7. MULTI-VITAMINS [Concomitant]
     Dosage: UNK, UNKNOWN
     Route: 065

REACTIONS (2)
  - THROMBOPHLEBITIS SUPERFICIAL [None]
  - VENOUS INSUFFICIENCY [None]
